FAERS Safety Report 5300888-6 (Version None)
Quarter: 2007Q2

REPORT INFORMATION
  Report Type: 
  Country: None (occurrence: None)
  Receive Date: 20070418
  Receipt Date: 20070406
  Transmission Date: 20071010
  Serious: Yes (Hospitalization)
  Sender: FDA-Public Use
  Company Number: FR-ROCHE-447452

PATIENT
  Age: 43 Year
  Sex: Male

DRUGS (28)
  1. DACLIZUMAB [Suspect]
     Route: 042
     Dates: start: 20060116, end: 20060116
  2. DACLIZUMAB [Suspect]
     Route: 042
     Dates: start: 20060121, end: 20060121
  3. MYCOPHENOLATE MOFETIL [Suspect]
     Route: 048
     Dates: start: 20060116, end: 20060116
  4. MYCOPHENOLATE MOFETIL [Suspect]
     Route: 048
     Dates: start: 20060117
  5. TACROLIMUS [Suspect]
     Dosage: DOSE ADJUSTED TO REACH PREDEFINED TARGET LEVEL
     Route: 048
     Dates: start: 20060122
  6. METHYLPREDNISOLONE 4MG TAB [Suspect]
     Dosage: TAPERED ACCORDING TO LOCAL PROTOCOL
     Route: 065
     Dates: start: 20060116, end: 20060223
  7. PREDNISONE TAB [Suspect]
     Dosage: TAPERED ACCORDING TO LOCAL PROTOCOL
     Route: 065
     Dates: start: 20060224
  8. GANCICLOVIR [Concomitant]
     Dates: start: 20060116, end: 20060226
  9. OMEPRAZOLE [Concomitant]
     Dates: start: 20060116, end: 20060208
  10. AMFOTERICINE B [Concomitant]
     Indication: PROPHYLAXIS
     Dosage: THERAPY STOPPED BETWEEN 20 FEBRUARY 2006 AND 25 FEB 2006
     Dates: start: 20060116, end: 20060420
  11. COLISTINE [Concomitant]
     Indication: PROPHYLAXIS
     Dates: start: 20060116, end: 20060220
  12. TAZOCILLINE [Concomitant]
     Indication: ANTIBIOTIC PROPHYLAXIS
     Dosage: THERAPY STOPPED BETWEEN 18 JAN 2006 AND 21 JAN 2006
     Dates: start: 20060116, end: 20060124
  13. PHOCYTAN [Concomitant]
     Dates: start: 20060117, end: 20060123
  14. OXAZEPAM [Concomitant]
     Indication: ANXIETY
     Dates: start: 20060118
  15. CLOMIPRAMINE HCL [Concomitant]
     Indication: ANXIETY
     Dates: start: 20060119, end: 20060128
  16. PROPOFOL [Concomitant]
     Indication: SEDATION
     Dates: start: 20060116, end: 20060209
  17. MIDAZOLAM HCL [Concomitant]
     Indication: SEDATION
     Dates: start: 20060116, end: 20060223
  18. ASPEGIC 1000 [Concomitant]
     Indication: THROMBOSIS PROPHYLAXIS
     Dates: start: 20060117
  19. HYDROXYZINE [Concomitant]
     Indication: SEDATION
     Dates: start: 20060116, end: 20060204
  20. MORPHINE [Concomitant]
     Dates: start: 20060116, end: 20060203
  21. CARBOCYSTEINE [Concomitant]
     Dates: start: 20060116, end: 20060117
  22. DINOPROSTONE [Concomitant]
     Dates: start: 20060116, end: 20060117
  23. INSULINE [Concomitant]
     Dates: start: 20060116, end: 20060204
  24. TRANXENE [Concomitant]
     Dates: start: 20060117, end: 20060217
  25. LEXOMIL [Concomitant]
     Dates: start: 20060118, end: 20060123
  26. ACUPAN [Concomitant]
     Dates: start: 20060118, end: 20060125
  27. DELURSAN [Concomitant]
     Dates: start: 20060119
  28. PROSTINE [Concomitant]
     Dates: start: 20060116, end: 20060117

REACTIONS (6)
  - ACUTE RESPIRATORY DISTRESS SYNDROME [None]
  - BLOOD CULTURE POSITIVE [None]
  - ESCHERICHIA INFECTION [None]
  - PNEUMOTHORAX [None]
  - RESPIRATORY ALKALOSIS [None]
  - STAPHYLOCOCCAL INFECTION [None]
